FAERS Safety Report 22289261 (Version 1)
Quarter: 2023Q2

REPORT INFORMATION
  Report Type: Spontaneous
  Country: US (occurrence: None)
  Receive Date: 20230504
  Receipt Date: 20230504
  Transmission Date: 20230722
  Serious: Yes (Death)
  Sender: FDA-Public Use
  Company Number: None

PATIENT
  Age: 88 Year
  Sex: Female

DRUGS (2)
  1. SAMSCA [Suspect]
     Active Substance: TOLVAPTAN
     Indication: Blood osmolarity decreased
     Dosage: FREQUENCY : 3 TIMES A WEEK;?
     Route: 048
     Dates: start: 2019, end: 20230303
  2. SAMSCA [Suspect]
     Active Substance: TOLVAPTAN
     Indication: Hyponatraemia

REACTIONS (1)
  - Death [None]

NARRATIVE: CASE EVENT DATE: 20230503
